FAERS Safety Report 20007179 (Version 3)
Quarter: 2021Q4

REPORT INFORMATION
  Report Type: Spontaneous
  Country: RS (occurrence: RS)
  Receive Date: 20211028
  Receipt Date: 20211125
  Transmission Date: 20220303
  Serious: Yes (Hospitalization)
  Sender: FDA-Public Use
  Company Number: RS-TEVA-2021-RS-1969549

PATIENT
  Age: 65 Year
  Sex: Male

DRUGS (14)
  1. AMIODARONE [Suspect]
     Active Substance: AMIODARONE
     Route: 048
     Dates: start: 202110
  2. CRESTOR [Suspect]
     Active Substance: ROSUVASTATIN CALCIUM
     Route: 065
     Dates: start: 202110
  3. NITROGLYCERIN [Suspect]
     Active Substance: NITROGLYCERIN
     Dosage: SPRAY
     Route: 065
     Dates: start: 202110
  4. ISOSORBIDE [Suspect]
     Active Substance: ISOSORBIDE
     Dosage: 60
     Route: 065
     Dates: start: 202110
  5. TRIMETAZIDINE DIHYDROCHLORIDE [Suspect]
     Active Substance: TRIMETAZIDINE DIHYDROCHLORIDE
     Route: 065
     Dates: start: 202110
  6. FENOFIBRATE [Concomitant]
     Active Substance: FENOFIBRATE
  7. TENSEC [Concomitant]
  8. ASPIRIN [Concomitant]
     Active Substance: ASPIRIN
  9. PANTOPRAZOLE SODIUM [Concomitant]
     Active Substance: PANTOPRAZOLE SODIUM
  10. Prexanor 10/10 [Concomitant]
  11. Salofalk 500 [Concomitant]
  12. URSODIOL [Concomitant]
     Active Substance: URSODIOL
  13. ALLOPURINOL [Concomitant]
     Active Substance: ALLOPURINOL
  14. Acenokumarol [Concomitant]

REACTIONS (5)
  - Contusion [Recovered/Resolved]
  - Dysstasia [Recovered/Resolved]
  - Pain [Recovered/Resolved]
  - Tremor [Recovered/Resolved]
  - Mouth haemorrhage [Recovered/Resolved]

NARRATIVE: CASE EVENT DATE: 20211014
